APPROVED DRUG PRODUCT: DIPRIVAN
Active Ingredient: PROPOFOL
Strength: 10MG/ML
Dosage Form/Route: INJECTABLE;INJECTION
Application: N019627 | Product #002 | TE Code: AB
Applicant: FRESENIUS KABI USA LLC
Approved: Jun 11, 1996 | RLD: Yes | RS: Yes | Type: RX